FAERS Safety Report 5928980-3 (Version None)
Quarter: 2008Q4

REPORT INFORMATION
  Report Type: 
  Country: None (occurrence: None)
  Receive Date: 20081024
  Receipt Date: 20081015
  Transmission Date: 20090506
  Serious: Yes (Hospitalization)
  Sender: FDA-Public Use
  Company Number: US-JNJFOC-20081004404

PATIENT
  Sex: Male
  Weight: 75 kg

DRUGS (7)
  1. DORIBAX [Suspect]
     Indication: PYREXIA
     Route: 041
  2. DORIBAX [Suspect]
     Indication: CELLULITIS
     Route: 041
  3. PLAVIX [Concomitant]
     Route: 048
  4. BENICAR [Concomitant]
     Indication: HYPERTENSION
     Route: 048
  5. ZOSYN [Concomitant]
     Indication: INFECTION
     Route: 065
  6. TYGACIL [Concomitant]
     Indication: INFECTION
     Route: 065
  7. LOPRESSOR [Concomitant]
     Indication: HYPERTENSION
     Route: 048

REACTIONS (1)
  - CONVULSION [None]
